FAERS Safety Report 24026205 (Version 3)
Quarter: 2024Q3

REPORT INFORMATION
  Report Type: Report from Study
  Country: IT (occurrence: IT)
  Receive Date: 20240628
  Receipt Date: 20240710
  Transmission Date: 20241016
  Serious: No
  Sender: ROCHE
  Company Number: IT-ROCHE-3348964

PATIENT
  Age: 69 Year
  Sex: Male

DRUGS (6)
  1. ALECTINIB [Suspect]
     Active Substance: ALECTINIB
     Indication: Non-small cell lung cancer
     Route: 048
     Dates: start: 20210803
  2. TAPENTADOL [Concomitant]
     Active Substance: TAPENTADOL
     Indication: Pain
     Route: 048
     Dates: start: 20220708, end: 20230123
  3. MORPHINE SULFATE [Concomitant]
     Active Substance: MORPHINE SULFATE
     Indication: Pain
     Route: 048
     Dates: start: 20230123
  4. MORPHINE SULFATE [Concomitant]
     Active Substance: MORPHINE SULFATE
     Route: 048
     Dates: start: 20230123
  5. PURSENNIDE [Concomitant]
     Indication: Constipation
     Route: 048
     Dates: start: 20230123
  6. LORLATINIB [Concomitant]
     Active Substance: LORLATINIB
     Dates: start: 20240203, end: 20240203

REACTIONS (1)
  - Hyperuricaemia [Not Recovered/Not Resolved]

NARRATIVE: CASE EVENT DATE: 20230123
